FAERS Safety Report 15122660 (Version 1)
Quarter: 2018Q3

REPORT INFORMATION
  Report Type: Spontaneous
  Country: FI (occurrence: FI)
  Receive Date: 20180709
  Receipt Date: 20180709
  Transmission Date: 20181010
  Serious: Yes (Other)
  Sender: FDA-Public Use
  Company Number: FI-PFIZER INC-2018269624

PATIENT
  Age: 25 Year
  Sex: Female

DRUGS (1)
  1. KETAMINE HCL [Suspect]
     Active Substance: KETAMINE HYDROCHLORIDE
     Indication: DEPRESSION
     Dosage: 29 MG, 1X/DAY
     Route: 042
     Dates: start: 20180524, end: 20180524

REACTIONS (4)
  - Clonus [Recovered/Resolved]
  - Hyperventilation [Recovered/Resolved]
  - Opisthotonus [Recovered/Resolved]
  - Product use in unapproved indication [Unknown]

NARRATIVE: CASE EVENT DATE: 20180524
